FAERS Safety Report 8759978 (Version 2)
Quarter: 2013Q1

REPORT INFORMATION
  Report Type: Report from Study
  Country: US (occurrence: US)
  Receive Date: 20120829
  Receipt Date: 20130118
  Transmission Date: 20140127
  Serious: Yes (Life-Threatening, Hospitalization)
  Sender: FDA-Public Use
  Company Number: US-JNJFOC-20120812779

PATIENT
  Age: 59 Year
  Sex: Female
  Weight: 59 kg

DRUGS (5)
  1. TYLENOL PM [Suspect]
     Indication: PRODUCT USED FOR UNKNOWN INDICATION
     Route: 048
  2. ACETAMINOPHEN\DEXTROMETHORPHAN HYDROBROMIDE\DIPHENHYDRAMINE HYDROCHLORIDE [Suspect]
     Indication: PRODUCT USED FOR UNKNOWN INDICATION
  3. ALCOHOL [Suspect]
     Indication: ALCOHOL ABUSE
     Route: 048
  4. IBUPROFEN [Concomitant]
     Route: 065
  5. AN UNKNOWN MEDICATION [Concomitant]

REACTIONS (10)
  - Hallucination [Recovered/Resolved]
  - Sedation [Recovered/Resolved]
  - Toxicity to various agents [Recovered/Resolved]
  - Dehydration [Recovered/Resolved]
  - Overdose [Recovered/Resolved]
  - Hypersomnia [Recovered/Resolved]
  - Aspartate aminotransferase increased [None]
  - Alanine aminotransferase increased [None]
  - Blood bilirubin increased [None]
  - Blood creatinine increased [None]
